FAERS Safety Report 7330364-0 (Version None)
Quarter: 2011Q1

REPORT INFORMATION
  Report Type: 
  Country: None (occurrence: None)
  Receive Date: 20110304
  Receipt Date: 20110224
  Transmission Date: 20110831
  Serious: Yes (Hospitalization)
  Sender: FDA-Public Use
  Company Number: US-BIOGENIDEC-2011BI007447

PATIENT
  Age: 54 Year
  Sex: Female

DRUGS (3)
  1. TYSABRI [Suspect]
     Indication: MULTIPLE SCLEROSIS
     Route: 042
     Dates: start: 20090714
  2. AVONEX [Concomitant]
     Route: 030
     Dates: start: 19960101
  3. AVONEX [Concomitant]
     Indication: MULTIPLE SCLEROSIS
     Route: 030

REACTIONS (2)
  - PNEUMONIA [None]
  - HEART RATE IRREGULAR [None]
